FAERS Safety Report 6965293-5 (Version None)
Quarter: 2010Q3

REPORT INFORMATION
  Report Type: 
  Country: None (occurrence: None)
  Receive Date: 20100903
  Receipt Date: 20100823
  Transmission Date: 20110219
  Serious: Yes (Hospitalization, Other)
  Sender: FDA-Public Use
  Company Number: US-JNJFOC-20100504939

PATIENT
  Sex: Male

DRUGS (6)
  1. LEVAQUIN [Suspect]
     Indication: UPPER RESPIRATORY TRACT INFECTION
     Route: 048
  2. LEVAQUIN [Suspect]
     Indication: ALLERGIC SINUSITIS
     Route: 048
  3. LEVAQUIN [Suspect]
     Indication: BRONCHITIS
     Route: 048
  4. LEVAQUIN [Suspect]
     Indication: RHINITIS ALLERGIC
     Route: 048
  5. LEVAQUIN [Suspect]
     Indication: BACTERIAL INFECTION
     Route: 048
  6. PREDNISONE [Suspect]
     Indication: ANTIINFLAMMATORY THERAPY
     Route: 065

REACTIONS (3)
  - ARTHRITIS [None]
  - OSTEOARTHRITIS [None]
  - TENDON RUPTURE [None]
